FAERS Safety Report 9162495 (Version 1)
Quarter: 2013Q1

REPORT INFORMATION
  Report Type: Spontaneous
  Country: NO (occurrence: NO)
  Receive Date: 20130314
  Receipt Date: 20130314
  Transmission Date: 20140127
  Serious: Yes (Hospitalization, Disabling)
  Sender: FDA-Public Use
  Company Number: NO-ASTRAZENECA-1998AP43960

PATIENT
  Age: 12 Year
  Sex: Male
  Weight: 41 kg

DRUGS (4)
  1. MERONEM [Suspect]
     Indication: CHOLANGITIS ACUTE
     Route: 042
     Dates: start: 19970923, end: 19970926
  2. NETILMICIN [Suspect]
     Indication: CHOLANGITIS ACUTE
     Route: 042
     Dates: start: 19970912, end: 19970926
  3. CEFOTAXIME [Suspect]
     Indication: CHOLANGITIS ACUTE
     Route: 042
     Dates: start: 19970912, end: 19970923
  4. METRONIDAZOLE [Suspect]
     Indication: CHOLANGITIS ACUTE
     Route: 042
     Dates: start: 19970916, end: 19970925

REACTIONS (12)
  - Respiratory disorder [Recovered/Resolved]
  - Renal disorder [Recovered/Resolved]
  - Blood creatinine increased [Recovered/Resolved]
  - Bone marrow failure [Recovered/Resolved]
  - Thrombocytopenia [Recovered/Resolved]
  - Leukopenia [Recovered/Resolved]
  - Periorbital oedema [Recovered/Resolved]
  - Rash maculo-papular [Recovered/Resolved]
  - Dyspnoea [Recovered/Resolved]
  - Oedema [Recovered/Resolved]
  - Rash [Recovered/Resolved]
  - Pruritus [Recovered/Resolved]
